FAERS Safety Report 18158578 (Version 3)
Quarter: 2020Q3

REPORT INFORMATION
  Report Type: Report from Study
  Country: US (occurrence: US)
  Receive Date: 20200817
  Receipt Date: 20200824
  Transmission Date: 20201103
  Serious: Yes (Life-Threatening, Hospitalization)
  Sender: FDA-Public Use
  Company Number: US-ROCHE-2658367

PATIENT
  Age: 83 Year
  Sex: Male
  Weight: 81.7 kg

DRUGS (30)
  1. TYLENOL [Concomitant]
     Active Substance: ACETAMINOPHEN
     Dates: start: 20200519
  2. SOLU?MEDROL [Concomitant]
     Active Substance: METHYLPREDNISOLONE SODIUM SUCCINATE
     Dates: start: 20200602
  3. CLOPIDOGREL BISULFATE. [Concomitant]
     Active Substance: CLOPIDOGREL BISULFATE
     Dates: start: 2018
  4. ALLOPURINOL. [Concomitant]
     Active Substance: ALLOPURINOL
     Dates: start: 201911
  5. TYLENOL [Concomitant]
     Active Substance: ACETAMINOPHEN
     Dates: start: 20200623
  6. TYLENOL [Concomitant]
     Active Substance: ACETAMINOPHEN
     Dates: start: 20200512
  7. BENADRYL [Concomitant]
     Active Substance: DIPHENHYDRAMINE HYDROCHLORIDE
     Dates: start: 20200602
  8. BENADRYL [Concomitant]
     Active Substance: DIPHENHYDRAMINE HYDROCHLORIDE
     Dates: start: 20200714
  9. BENADRYL [Concomitant]
     Active Substance: DIPHENHYDRAMINE HYDROCHLORIDE
     Dates: start: 20200513
  10. SOLU?MEDROL [Concomitant]
     Active Substance: METHYLPREDNISOLONE SODIUM SUCCINATE
     Dates: start: 20200526
  11. TOCILIZUMAB. [Suspect]
     Active Substance: TOCILIZUMAB
     Indication: B-CELL LYMPHOMA REFRACTORY
     Dosage: DATE OF MOST RECENT DOSE OF STUDY DRUG PRIOR TO SERIOUS ADVERSE EVENT 676 MG IN 100 ML ON 27?MAY?202
     Route: 042
     Dates: start: 20200527
  12. TYLENOL [Concomitant]
     Active Substance: ACETAMINOPHEN
     Dates: start: 20200513
  13. FENTANYL. [Concomitant]
     Active Substance: FENTANYL
     Indication: BACK PAIN
     Dates: start: 201911
  14. HYDROCODONE/ACETAMINOPHEN [Concomitant]
     Active Substance: ACETAMINOPHEN\HYDROCODONE
     Indication: BACK PAIN
     Dates: start: 201911
  15. TYLENOL [Concomitant]
     Active Substance: ACETAMINOPHEN
     Dates: start: 20200526
  16. SOLU?MEDROL [Concomitant]
     Active Substance: METHYLPREDNISOLONE SODIUM SUCCINATE
     Dates: start: 20200714
  17. ASPIRIN. [Concomitant]
     Active Substance: ASPIRIN
     Dates: start: 2015
  18. TYLENOL [Concomitant]
     Active Substance: ACETAMINOPHEN
     Dates: start: 20200602
  19. BENADRYL [Concomitant]
     Active Substance: DIPHENHYDRAMINE HYDROCHLORIDE
     Dates: start: 20200519
  20. BENADRYL [Concomitant]
     Active Substance: DIPHENHYDRAMINE HYDROCHLORIDE
     Dates: start: 20200623
  21. GABAPENTIN. [Concomitant]
     Active Substance: GABAPENTIN
     Indication: PAIN IN EXTREMITY
     Dates: start: 2019
  22. OBINUTUZUMAB. [Suspect]
     Active Substance: OBINUTUZUMAB
     Indication: B-CELL LYMPHOMA REFRACTORY
     Dosage: DATE OF MOST RECENT DOSE OF STUDY DRUG PRIOR TO SERIOUS ADVERSE EVENT 900 MG ON 13?MAY?2020 AT 10:00
     Route: 042
     Dates: start: 20200512
  23. SOLU?MEDROL [Concomitant]
     Active Substance: METHYLPREDNISOLONE SODIUM SUCCINATE
     Dates: start: 20200512
  24. SOLU?MEDROL [Concomitant]
     Active Substance: METHYLPREDNISOLONE SODIUM SUCCINATE
     Dates: start: 20200623
  25. SOLU?MEDROL [Concomitant]
     Active Substance: METHYLPREDNISOLONE SODIUM SUCCINATE
     Dates: start: 20200513
  26. RO7082859 (CD20/C3 T?CELL BISPECIFIC MAB) [Suspect]
     Active Substance: GLOFITAMAB
     Indication: B-CELL LYMPHOMA REFRACTORY
     Dosage: DATE OF MOST RECENT DOSE OF STUDY DRUG PRIOR TO ADVERSE EVENT 30 MG ON 14?JUL?2020
     Route: 042
     Dates: start: 20200519
  27. TYLENOL [Concomitant]
     Active Substance: ACETAMINOPHEN
     Dates: start: 20200714
  28. BENADRYL [Concomitant]
     Active Substance: DIPHENHYDRAMINE HYDROCHLORIDE
     Dates: start: 20200526
  29. BENADRYL [Concomitant]
     Active Substance: DIPHENHYDRAMINE HYDROCHLORIDE
     Dates: start: 20200512
  30. SOLU?MEDROL [Concomitant]
     Active Substance: METHYLPREDNISOLONE SODIUM SUCCINATE
     Dates: start: 20200519

REACTIONS (1)
  - Sepsis [Not Recovered/Not Resolved]

NARRATIVE: CASE EVENT DATE: 20200804
